FAERS Safety Report 4369917-0 (Version None)
Quarter: 2004Q2

REPORT INFORMATION
  Report Type: 
  Country: None (occurrence: None)
  Receive Date: 20040527
  Receipt Date: 20040512
  Transmission Date: 20050107
  Serious: Yes (Life-Threatening)
  Sender: FDA-Public Use
  Company Number: JP_040503127

PATIENT
  Sex: Male

DRUGS (2)
  1. GEMZAR [Suspect]
     Indication: BLADDER CANCER
     Dosage: IV
     Route: 042
  2. TAXOTERE [Concomitant]
     Dosage: IV
     Route: 042

REACTIONS (1)
  - INTERSTITIAL LUNG DISEASE [None]
